FAERS Safety Report 7675125-8 (Version None)
Quarter: 2011Q3

REPORT INFORMATION
  Report Type: 
  Country: None (occurrence: None)
  Receive Date: 20110810
  Receipt Date: 20110803
  Transmission Date: 20111222
  Serious: Yes (Other)
  Sender: FDA-Public Use
  Company Number: JP-MERCK-1108USA00878

PATIENT
  Age: 67 Year
  Sex: Male

DRUGS (12)
  1. METHYCOBAL [Concomitant]
     Route: 065
  2. AMARYL [Concomitant]
     Route: 065
  3. PLETAL [Concomitant]
     Route: 065
  4. URSO 250 [Concomitant]
     Route: 065
  5. ASPIRIN [Concomitant]
     Route: 065
  6. CANDESARTAN CILEXETIL [Concomitant]
     Route: 065
  7. JANUVIA [Suspect]
     Indication: TYPE 2 DIABETES MELLITUS
     Route: 048
     Dates: start: 20110210, end: 20110616
  8. ACTOS [Concomitant]
     Route: 065
  9. METFORMIN HCL [Concomitant]
     Route: 065
  10. TANATRIL [Concomitant]
     Route: 065
  11. URINORM [Concomitant]
     Route: 065
  12. CALBLOCK [Concomitant]
     Route: 065

REACTIONS (1)
  - BLOOD CREATININE INCREASED [None]
